FAERS Safety Report 25343667 (Version 1)
Quarter: 2025Q2

REPORT INFORMATION
  Report Type: Spontaneous
  Country: US (occurrence: None)
  Receive Date: 20250521
  Receipt Date: 20250521
  Transmission Date: 20250717
  Serious: Yes (Death)
  Sender: FDA-CTU
  Company Number: None

PATIENT
  Age: 11 Year
  Sex: Male

DRUGS (3)
  1. EPIDIOLEX [Suspect]
     Active Substance: CANNABIDIOL
     Dosage: 3 ML TWICE A DAY ORAL
     Route: 048
  2. TRAZODONE [Concomitant]
     Active Substance: TRAZODONE HYDROCHLORIDE
  3. RIFAXIMIN [Concomitant]
     Active Substance: RIFAXIMIN

REACTIONS (3)
  - Respiratory failure [None]
  - Pain [None]
  - Hospice care [None]

NARRATIVE: CASE EVENT DATE: 20250519
